FAERS Safety Report 5121829-0 (Version None)
Quarter: 2006Q4

REPORT INFORMATION
  Report Type: 
  Country: None (occurrence: None)
  Receive Date: 20061003
  Receipt Date: 20060922
  Transmission Date: 20070319
  Serious: Yes (Other)
  Sender: FDA-Public Use
  Company Number: GXKR2006DK05968

PATIENT
  Age: 15 Year
  Sex: Male

DRUGS (1)
  1. DICILLIN                      (DICLOXACILLIN) [Suspect]
     Dosage: 1500 MG, ORAL
     Route: 048

REACTIONS (1)
  - ECZEMA [None]
